FAERS Safety Report 19459342 (Version 18)
Quarter: 2022Q2

REPORT INFORMATION
  Report Type: Report from Study
  Country: ES (occurrence: None)
  Receive Date: 20210624
  Receipt Date: 20220401
  Transmission Date: 20220721
  Serious: Yes (Hospitalization)
  Sender: FDA-Public Use
  Company Number: ES-EISAI MEDICAL RESEARCH-EC-2021-094965

PATIENT
  Age: 76 Year
  Sex: Male
  Weight: 65.9 kg

DRUGS (9)
  1. LENVATINIB [Suspect]
     Active Substance: LENVATINIB
     Indication: Transitional cell carcinoma
     Route: 048
     Dates: start: 20210316, end: 20210615
  2. PEMBROLIZUMAB [Suspect]
     Active Substance: PEMBROLIZUMAB
     Indication: Transitional cell carcinoma
     Route: 041
     Dates: start: 20210316, end: 20210505
  3. PEMBROLIZUMAB [Suspect]
     Active Substance: PEMBROLIZUMAB
     Route: 041
     Dates: start: 20210524, end: 20210524
  4. OLMESARTAN MEDOXOMIL [Concomitant]
     Active Substance: OLMESARTAN MEDOXOMIL
     Dates: start: 20090101
  5. BROMAZEPAM [Concomitant]
     Active Substance: BROMAZEPAM
     Dates: start: 202101
  6. DIPYRONE [Concomitant]
     Active Substance: DIPYRONE
     Dates: start: 20210214
  7. ACETAMINOPHEN [Concomitant]
     Active Substance: ACETAMINOPHEN
     Dates: start: 20210214
  8. FENTANYL [Concomitant]
     Active Substance: FENTANYL
     Dates: start: 20210426
  9. MINERAL OIL [Concomitant]
     Active Substance: MINERAL OIL
     Dates: start: 20210507, end: 20210617

REACTIONS (2)
  - Renal failure [Not Recovered/Not Resolved]
  - Hypertension [Recovering/Resolving]

NARRATIVE: CASE EVENT DATE: 20210616
